FAERS Safety Report 11410168 (Version 1)
Quarter: 2015Q3

REPORT INFORMATION
  Report Type: Spontaneous
  Country: US (occurrence: None)
  Receive Date: 20150820
  Receipt Date: 20150820
  Transmission Date: 20151125
  Serious: No
  Sender: FDA-Public Use
  Company Number: None

PATIENT
  Age: 61 Year
  Sex: Male
  Weight: 75.3 kg

DRUGS (2)
  1. 5-FU [Suspect]
     Active Substance: FLUOROURACIL
  2. INFUSION PUMP [Concomitant]
     Active Substance: DEVICE

REACTIONS (3)
  - Underdose [None]
  - Device issue [None]
  - Device infusion issue [None]

NARRATIVE: CASE EVENT DATE: 20150729
